FAERS Safety Report 7020614-2 (Version None)
Quarter: 2010Q3

REPORT INFORMATION
  Report Type: 
  Country: None (occurrence: None)
  Receive Date: 20100929
  Receipt Date: 20100923
  Transmission Date: 20110219
  Serious: Yes (Hospitalization)
  Sender: FDA-Public Use
  Company Number: A0882969A

PATIENT
  Age: 48 Year
  Sex: Male

DRUGS (14)
  1. AVANDIA [Suspect]
     Route: 048
     Dates: start: 20060601, end: 20070601
  2. LISINOPRIL [Concomitant]
  3. METOPROLOL TARTRATE [Concomitant]
  4. TRAMADOL [Concomitant]
  5. SIMVASTATIN [Concomitant]
  6. PLAVIX [Concomitant]
  7. FUROSEMIDE [Concomitant]
  8. ISOSORBIDE [Concomitant]
  9. POTASSIUM [Concomitant]
  10. NYSTATIN [Concomitant]
  11. AMITRIPTYLINE [Concomitant]
  12. NITROGLYCERIN [Concomitant]
  13. RANITIDINE [Concomitant]
  14. ASPIRIN [Concomitant]

REACTIONS (3)
  - CARDIAC DISORDER [None]
  - CARDIAC PACEMAKER INSERTION [None]
  - MYOCARDIAL INFARCTION [None]
